FAERS Safety Report 7289638-4 (Version None)
Quarter: 2011Q1

REPORT INFORMATION
  Report Type: 
  Country: None (occurrence: None)
  Receive Date: 20110214
  Receipt Date: 20110203
  Transmission Date: 20110831
  Serious: Yes (Hospitalization)
  Sender: FDA-Public Use
  Company Number: US-BIOGENIDEC-2011BI004194

PATIENT
  Age: 57 Year
  Sex: Female
  Weight: 59 kg

DRUGS (6)
  1. NIZATIDINE [Concomitant]
     Route: 048
     Dates: start: 20110103
  2. PREMARIN [Concomitant]
     Indication: HORMONE REPLACEMENT THERAPY
     Route: 048
     Dates: start: 20110103
  3. LEVOTHYROXINE SODIUM [Concomitant]
     Dosage: DOSE UNIT:75
     Route: 048
     Dates: start: 20110103
  4. AMANTADINE HCL [Concomitant]
     Indication: FATIGUE
     Route: 048
     Dates: start: 20110103
  5. LIORESAL [Concomitant]
     Indication: MUSCLE SPASTICITY
     Route: 048
     Dates: start: 20110103
  6. TYSABRI [Suspect]
     Indication: MULTIPLE SCLEROSIS
     Route: 042
     Dates: start: 20071113

REACTIONS (1)
  - LOCALISED INFECTION [None]
